FAERS Safety Report 13243014 (Version 1)
Quarter: 2017Q1

REPORT INFORMATION
  Report Type: Spontaneous
  Country: US (occurrence: US)
  Receive Date: 20170216
  Receipt Date: 20170216
  Transmission Date: 20170428
  Serious: Yes (Other)
  Sender: FDA-Public Use
  Company Number: None

PATIENT
  Age: 32 Year
  Sex: Female
  Weight: 81.45 kg

DRUGS (5)
  1. HYDROCODONE-ACETAMINOPH [Concomitant]
  2. TORADOL [Suspect]
     Active Substance: KETOROLAC TROMETHAMINE
     Indication: PAIN
     Route: 030
     Dates: start: 20161120, end: 20161123
  3. METHOCARBAMOL. [Concomitant]
     Active Substance: METHOCARBAMOL
  4. IRON PLUS B VITAMIN COMPLEX [Concomitant]
     Active Substance: IRON\VITAMIN B COMPLEX
  5. MELOXICAM. [Suspect]
     Active Substance: MELOXICAM
     Indication: PAIN
     Dosage: ?          QUANTITY:30 TABLET(S);?
     Route: 048
     Dates: start: 20161120, end: 20161123

REACTIONS (1)
  - Vaginal haemorrhage [None]

NARRATIVE: CASE EVENT DATE: 20161123
